FAERS Safety Report 7828771-2 (Version None)
Quarter: 2011Q4

REPORT INFORMATION
  Report Type: 
  Country: None (occurrence: None)
  Receive Date: 20111020
  Receipt Date: 20110405
  Transmission Date: 20120403
  Serious: No
  Sender: FDA-Public Use
  Company Number: US-MYLANLABS-2011S1007045

PATIENT
  Age: 62 Year
  Sex: Female

DRUGS (4)
  1. CARVEDILOL [Suspect]
     Indication: BLOOD PRESSURE
     Dates: start: 20110329, end: 20110401
  2. SIMVASTATIN [Concomitant]
  3. ASPIRIN [Concomitant]
  4. PLAVIX [Concomitant]

REACTIONS (4)
  - GASTROINTESTINAL PAIN [None]
  - DIARRHOEA [None]
  - VOMITING [None]
  - REACTION TO DRUG EXCIPIENTS [None]
